FAERS Safety Report 25486600 (Version 3)
Quarter: 2025Q2

REPORT INFORMATION
  Report Type: Other
  Country: CN (occurrence: CN)
  Receive Date: 20250627
  Receipt Date: 20250627
  Transmission Date: 20250716
  Serious: Yes (Life-Threatening, Other)
  Sender: Evive Biotechnology
  Company Number: CN-EVIVE BIOTECHNOLOGY IRELAND LIMITED-EVI-CN-2025-000031

PATIENT
  Age: 31 Year
  Sex: Female

DRUGS (1)
  1. RYZNEUTA [Suspect]
     Active Substance: EFBEMALENOGRASTIM ALFA-VUXW
     Indication: Neutropenia
     Dosage: 20 MILLIGRAM, QD
     Route: 058
     Dates: start: 20250529, end: 20250529

REACTIONS (1)
  - Anaphylactic shock [Recovering/Resolving]

NARRATIVE: CASE EVENT DATE: 20250529
